FAERS Safety Report 18271489 (Version 1)
Quarter: 2020Q3

REPORT INFORMATION
  Report Type: Spontaneous
  Country: CN (occurrence: CN)
  Receive Date: 20200916
  Receipt Date: 20200916
  Transmission Date: 20201103
  Serious: Yes (Other)
  Sender: FDA-Public Use
  Company Number: CN-ROCHE-2674381

PATIENT
  Age: 35 Year
  Sex: Male
  Weight: 54 kg

DRUGS (3)
  1. PEGASYS [Suspect]
     Active Substance: PEGINTERFERON ALFA-2A
     Indication: CHRONIC HEPATITIS B
     Route: 058
     Dates: start: 20200807, end: 20200814
  2. COMPOUND GLYCYRRHIZIN INJECTION [Concomitant]
     Dates: start: 20200730
  3. POLYENE PHOSPHATIDYLCHOLINE [Concomitant]
     Active Substance: PHOSPHOLIPID
     Dates: start: 20200730

REACTIONS (2)
  - Influenza like illness [Unknown]
  - Myelosuppression [Unknown]

NARRATIVE: CASE EVENT DATE: 20200814
